FAERS Safety Report 11202663 (Version 1)
Quarter: 2015Q2

REPORT INFORMATION
  Report Type: Report from Study
  Country: BR (occurrence: BR)
  Receive Date: 20150619
  Receipt Date: 20150619
  Transmission Date: 20150821
  Serious: Yes (Hospitalization)
  Sender: FDA-Public Use
  Company Number: BR-ABBVIE-15K-020-1409406-00

PATIENT
  Age: 53 Year
  Sex: Female
  Weight: 68 kg

DRUGS (1)
  1. HUMIRA [Suspect]
     Active Substance: ADALIMUMAB
     Indication: RHEUMATOID ARTHRITIS
     Route: 058
     Dates: start: 20150220, end: 201505

REACTIONS (8)
  - Immunodeficiency [Not Recovered/Not Resolved]
  - Erythema [Recovering/Resolving]
  - Burning sensation [Recovering/Resolving]
  - Peripheral swelling [Not Recovered/Not Resolved]
  - Erysipelas [Not Recovered/Not Resolved]
  - Herpes zoster [Recovering/Resolving]
  - Erythema [Not Recovered/Not Resolved]
  - Pancytopenia [Unknown]

NARRATIVE: CASE EVENT DATE: 2015
